FAERS Safety Report 20321481 (Version 1)
Quarter: 2022Q1

REPORT INFORMATION
  Report Type: Spontaneous
  Country: US (occurrence: US)
  Receive Date: 20220111
  Receipt Date: 20220111
  Transmission Date: 20220424
  Serious: No
  Sender: FDA-Public Use
  Company Number: US-SUN PHARMACEUTICAL INDUSTRIES LTD-2021R1-277470

PATIENT
  Sex: Female

DRUGS (1)
  1. LEVULAN KERASTICK [Suspect]
     Active Substance: AMINOLEVULINIC ACID HYDROCHLORIDE
     Indication: Photodynamic therapy
     Dosage: UNK(ONCE PER YEAR)
     Route: 065
     Dates: start: 20201229, end: 20201229

REACTIONS (1)
  - Drug ineffective [Unknown]
